FAERS Safety Report 6765206-5 (Version None)
Quarter: 2010Q2

REPORT INFORMATION
  Report Type: 
  Country: None (occurrence: None)
  Receive Date: 20100610
  Receipt Date: 20100610
  Transmission Date: 20101027
  Serious: Yes (Other)
  Sender: FDA-Public Use
  Company Number: None

PATIENT
  Age: 35 Year
  Sex: Female
  Weight: 68.0396 kg

DRUGS (4)
  1. NUVARING [Suspect]
     Indication: CONTRACEPTION
     Dosage: .120/.015 MG PER DAY VAG
     Route: 067
     Dates: start: 20100503, end: 20100524
  2. NUVARING [Suspect]
     Indication: MENSTRUAL CYCLE MANAGEMENT
     Dosage: .120/.015 MG PER DAY VAG
     Route: 067
     Dates: start: 20100503, end: 20100524
  3. NUVARING [Suspect]
     Indication: CONTRACEPTION
     Dosage: .120/.015 MG PER DAY VAG
     Route: 067
     Dates: start: 20100601, end: 20100609
  4. NUVARING [Suspect]
     Indication: MENSTRUAL CYCLE MANAGEMENT
     Dosage: .120/.015 MG PER DAY VAG
     Route: 067
     Dates: start: 20100601, end: 20100609

REACTIONS (2)
  - SWELLING FACE [None]
  - THROAT TIGHTNESS [None]
